FAERS Safety Report 7792092-7 (Version None)
Quarter: 2011Q3

REPORT INFORMATION
  Report Type: 
  Country: None (occurrence: None)
  Receive Date: 20110930
  Receipt Date: 20110930
  Transmission Date: 20111222
  Serious: Yes (Life-Threatening)
  Sender: FDA-Public Use
  Company Number: None

PATIENT
  Age: 71 Year
  Sex: Female
  Weight: 56.6996 kg

DRUGS (1)
  1. CITALOPRAM HYDROBROMIDE [Suspect]
     Indication: DYSPNOEA
     Dosage: 1/2 TAB 1 QD PER OS
     Route: 048
     Dates: start: 20110527

REACTIONS (2)
  - URINARY HESITATION [None]
  - URINARY RETENTION [None]
